FAERS Safety Report 6254200-9 (Version None)
Quarter: 2009Q3

REPORT INFORMATION
  Report Type: 
  Country: None (occurrence: None)
  Receive Date: 20090701
  Receipt Date: 20090701
  Transmission Date: 20100115
  Serious: No
  Sender: FDA-Public Use
  Company Number: None

PATIENT
  Age: 81 Year
  Sex: Female

DRUGS (1)
  1. ALENDRONATE SODIUM [Suspect]
     Indication: OSTEOPOROSIS
     Dosage: 70MG PO ONCE WKLY (06/21/09 TO CURRENT FOR THIS BATCH.PT ON MED FOR ABOUT 5 YRS WITH NO PROBLEMS)
     Route: 048
     Dates: start: 20090621

REACTIONS (6)
  - HEADACHE [None]
  - JOINT CREPITATION [None]
  - NECK PAIN [None]
  - PAIN IN EXTREMITY [None]
  - PAIN IN JAW [None]
  - TEETHING [None]
